FAERS Safety Report 4882797-X (Version None)
Quarter: 2005Q4

REPORT INFORMATION
  Report Type: 
  Country: None (occurrence: None)
  Receive Date: 20051201
  Receipt Date: 20050927
  Transmission Date: 20060501
  Serious: No
  Sender: FDA-Public Use
  Company Number: 2005PV002577

PATIENT
  Age: 67 Year
  Sex: Male
  Weight: 129.2752 kg

DRUGS (4)
  1. BYETTA [Suspect]
     Indication: DIABETES MELLITUS NON-INSULIN-DEPENDENT
     Dosage: 5 MCG;BID;SC
     Route: 058
     Dates: start: 20050823
  2. GLIPIZIDE [Concomitant]
  3. STARLIX [Concomitant]
  4. METFORMIN HCL [Concomitant]

REACTIONS (6)
  - DECREASED APPETITE [None]
  - DYSPEPSIA [None]
  - EARLY SATIETY [None]
  - HEADACHE [None]
  - STOMACH DISCOMFORT [None]
  - WEIGHT DECREASED [None]
